FAERS Safety Report 11893459 (Version 7)
Quarter: 2016Q2

REPORT INFORMATION
  Report Type: Report from Study
  Country: DE (occurrence: DE)
  Receive Date: 20160106
  Receipt Date: 20160504
  Transmission Date: 20160815
  Serious: Yes (Hospitalization)
  Sender: FDA-Public Use
  Company Number: DE-JNJFOC-20151209488

PATIENT
  Age: 73 Year
  Sex: Female
  Weight: 74 kg

DRUGS (25)
  1. LERCANIDIPINE [Concomitant]
     Active Substance: LERCANIDIPINE
     Indication: HYPERCHOLESTEROLAEMIA
     Route: 065
     Dates: start: 2010, end: 20150123
  2. METOPROLOL SUCCINATE. [Concomitant]
     Active Substance: METOPROLOL SUCCINATE
     Dosage: DOSE: 47.5
     Route: 065
  3. BRILIQUE [Concomitant]
     Active Substance: TICAGRELOR
     Indication: ANTIPLATELET THERAPY
     Route: 065
     Dates: start: 20150123
  4. CEFUROXIME. [Concomitant]
     Active Substance: CEFUROXIME
     Indication: LARYNGITIS
     Route: 065
     Dates: start: 20150805, end: 20150810
  5. COTRIM D.S. [Concomitant]
     Active Substance: SULFAMETHOXAZOLE\TRIMETHOPRIM
     Route: 065
  6. RIVAROXABAN [Suspect]
     Active Substance: RIVAROXABAN
     Indication: CEREBROVASCULAR ACCIDENT PROPHYLAXIS
     Route: 048
     Dates: start: 20150123, end: 20151210
  7. RIVAROXABAN [Suspect]
     Active Substance: RIVAROXABAN
     Indication: ATRIAL FIBRILLATION
     Route: 048
     Dates: start: 20160120
  8. RIVAROXABAN [Suspect]
     Active Substance: RIVAROXABAN
     Indication: ATRIAL FIBRILLATION
     Route: 048
     Dates: start: 20150123, end: 20151210
  9. SORTIS [Concomitant]
     Active Substance: ATORVASTATIN
     Dosage: DOSE: 10
     Route: 065
  10. AMLODIPINE [Concomitant]
     Active Substance: AMLODIPINE BESYLATE
     Indication: HYPERTENSION
     Route: 065
     Dates: start: 20150724, end: 20150727
  11. METHYLPREDNISOLONE. [Concomitant]
     Active Substance: METHYLPREDNISOLONE
     Indication: LARYNGITIS
     Route: 065
     Dates: start: 20150805, end: 20150806
  12. FRAXIPARINE [Concomitant]
     Active Substance: NADROPARIN CALCIUM
     Dosage: DOSE: 0.6
     Route: 065
  13. L-THYROXIN [Concomitant]
     Active Substance: LEVOTHYROXINE SODIUM
     Dosage: DOSE: 76
     Route: 065
  14. ASA [Concomitant]
     Active Substance: ASPIRIN
     Indication: ANTIPLATELET THERAPY
     Route: 065
     Dates: start: 20150124
  15. RAMILICH [Concomitant]
     Active Substance: RAMIPRIL
     Dosage: DOSE: 5
     Route: 065
  16. TAVANIC [Concomitant]
     Active Substance: LEVOFLOXACIN
     Route: 065
  17. LEVOFLOXACIN. [Concomitant]
     Active Substance: LEVOFLOXACIN
     Route: 065
  18. RIVAROXABAN [Suspect]
     Active Substance: RIVAROXABAN
     Indication: CEREBROVASCULAR ACCIDENT PROPHYLAXIS
     Route: 048
     Dates: start: 20151216, end: 20151229
  19. RIVAROXABAN [Suspect]
     Active Substance: RIVAROXABAN
     Indication: ATRIAL FIBRILLATION
     Route: 048
     Dates: start: 20151216, end: 20151229
  20. PANTOZOL [Concomitant]
     Active Substance: PANTOPRAZOLE SODIUM
     Dosage: DOSE: 40
     Route: 065
  21. ASA [Concomitant]
     Active Substance: ASPIRIN
     Indication: ANTIPLATELET THERAPY
     Route: 065
     Dates: start: 20150123, end: 20150123
  22. THYME. [Concomitant]
     Active Substance: THYME
     Indication: LARYNGITIS
     Route: 065
     Dates: start: 20150803, end: 20150804
  23. RIVAROXABAN [Suspect]
     Active Substance: RIVAROXABAN
     Indication: CEREBROVASCULAR ACCIDENT PROPHYLAXIS
     Route: 048
     Dates: start: 20160120
  24. LERCANIDIPINE [Concomitant]
     Active Substance: LERCANIDIPINE
     Indication: HYPERCHOLESTEROLAEMIA
     Dosage: DOSE: 10
     Route: 065
  25. COTRIMAZOL [Concomitant]
     Route: 065

REACTIONS (2)
  - Diffuse large B-cell lymphoma [Recovered/Resolved with Sequelae]
  - Central nervous system lymphoma [Recovered/Resolved with Sequelae]

NARRATIVE: CASE EVENT DATE: 20151210
